FAERS Safety Report 10431711 (Version 1)
Quarter: 2014Q3

REPORT INFORMATION
  Report Type: Spontaneous
  Country: CN (occurrence: CN)
  Receive Date: 20140904
  Receipt Date: 20140904
  Transmission Date: 20150326
  Serious: Yes (Other)
  Sender: FDA-Public Use
  Company Number: CN-ALLERGAN-1418998US

PATIENT
  Age: 56 Year
  Sex: Female

DRUGS (3)
  1. ACETAZOLAMIDE. [Suspect]
     Active Substance: ACETAZOLAMIDE
     Indication: OCULAR HYPERTENSION
     Route: 048
  2. MANNITOL. [Suspect]
     Active Substance: MANNITOL
     Indication: OCULAR HYPERTENSION
     Dosage: UNK
     Route: 042
  3. BRIMONIDINE;/TIMOLOL [Suspect]
     Active Substance: BRIMONIDINE TARTRATE\TIMOLOL MALEATE
     Indication: OCULAR HYPERTENSION
     Dosage: THREE TIMES DAILY
     Route: 047

REACTIONS (1)
  - Intraocular pressure increased [Recovered/Resolved]
